FAERS Safety Report 8614872-8 (Version None)
Quarter: 2012Q3

REPORT INFORMATION
  Report Type: 
  Country: None (occurrence: None)
  Receive Date: 20120823
  Receipt Date: 20120608
  Transmission Date: 20120928
  Serious: No
  Sender: FDA-Public Use
  Company Number: US-BRISTOL-MYERS SQUIBB COMPANY-16674046

PATIENT
  Age: 56 Year
  Sex: Female

DRUGS (5)
  1. KOMBIGLYZE XR [Suspect]
     Dosage: 1DF=5/1000 MG
  2. ALPRAZOLAM [Concomitant]
  3. LIPITOR [Concomitant]
  4. HYDROCHLOROTHIAZIDE [Concomitant]
  5. SERTRALINE HYDROCHLORIDE [Concomitant]

REACTIONS (1)
  - ADVERSE EVENT [None]
